FAERS Safety Report 4642285-2 (Version None)
Quarter: 2005Q2

REPORT INFORMATION
  Report Type: 
  Country: None (occurrence: None)
  Receive Date: 20050421
  Receipt Date: 20050414
  Transmission Date: 20051028
  Serious: Yes (Hospitalization)
  Sender: FDA-Public Use
  Company Number: 05-04-0638

PATIENT
  Age: 52 Year
  Sex: Male
  Weight: 91 kg

DRUGS (7)
  1. TRAMADOL HCL [Suspect]
     Indication: ARTHRITIS
     Dosage: 50-100MG QDS ORAL
     Route: 048
     Dates: start: 20050201
  2. TRAMADOL HCL [Suspect]
     Indication: BACK PAIN
     Dosage: 50-100MG QDS ORAL
     Route: 048
     Dates: start: 20050201
  3. BEXTRA [Suspect]
     Indication: ARTHRITIS
     Dosage: 10MG OD ORAL
     Route: 048
     Dates: end: 20050330
  4. BEXTRA [Suspect]
     Indication: BACK PAIN
     Dosage: 10MG OD ORAL
     Route: 048
     Dates: end: 20050330
  5. ROFECOXIB [Concomitant]
  6. ACETAMINOPHEN [Concomitant]
  7. GLUCOSAMINE [Concomitant]

REACTIONS (5)
  - CARDIAC DISORDER [None]
  - CHEST PAIN [None]
  - DYSPEPSIA [None]
  - GASTRITIS [None]
  - LOWER RESPIRATORY TRACT INFECTION [None]
